FAERS Safety Report 17289819 (Version 1)
Quarter: 2020Q1

REPORT INFORMATION
  Report Type: Spontaneous
  Country: BR (occurrence: BR)
  Receive Date: 20200120
  Receipt Date: 20200120
  Transmission Date: 20200409
  Serious: Yes (Other)
  Sender: FDA-Public Use
  Company Number: BR-PURDUE PHARMA-GBR-2019-0073938

PATIENT
  Age: 21 Year
  Sex: Male

DRUGS (2)
  1. RESTIVA [Suspect]
     Active Substance: BUPRENORPHINE
     Dosage: UNK (10 MG STRENGTH)
     Route: 062
     Dates: start: 201909
  2. RESTIVA [Suspect]
     Active Substance: BUPRENORPHINE
     Indication: FIBROMYALGIA
     Dosage: UNK (5 MG STRENGTH)
     Route: 062

REACTIONS (7)
  - Application site haemorrhage [Unknown]
  - Product contamination microbial [Unknown]
  - Application site hypersensitivity [Unknown]
  - Nausea [Unknown]
  - Dizziness [Unknown]
  - Poor quality product administered [Unknown]
  - Scar [Unknown]
